FAERS Safety Report 14340903 (Version 10)
Quarter: 2018Q2

REPORT INFORMATION
  Report Type: Spontaneous
  Country: FR (occurrence: FR)
  Receive Date: 20180102
  Receipt Date: 20180530
  Transmission Date: 20180711
  Serious: Yes (Other)
  Sender: FDA-Public Use
  Company Number: FR-CONCORDIA PHARMACEUTICALS INC.-E2B_00009185

PATIENT
  Age: 69 Year
  Sex: Male

DRUGS (20)
  1. ANTITHYMOCYTE IMMUNOGLOBULIN [Suspect]
     Active Substance: THYMOCYTE IMMUNE GLOBULIN NOS
     Dosage: 100 G, UNK, (OVER A PERIOD OF 48 HOURS)
     Route: 042
     Dates: end: 201307
  2. INDAPAMIDE. [Concomitant]
     Active Substance: INDAPAMIDE
     Dosage: UNK
     Dates: end: 2015
  3. EVEROLIMUS. [Suspect]
     Active Substance: EVEROLIMUS
     Indication: IMMUNOSUPPRESSANT DRUG THERAPY
     Dosage: UNK
  4. ITRACONAZOLE. [Concomitant]
     Active Substance: ITRACONAZOLE
     Dosage: UNK
     Dates: end: 2015
  5. VALGANCICLOVIR. [Concomitant]
     Active Substance: VALGANCICLOVIR
     Dosage: UNK
     Dates: end: 2015
  6. MYCOPHENOLATE MOFETIL. [Suspect]
     Active Substance: MYCOPHENOLATE MOFETIL
     Indication: IMMUNOSUPPRESSANT DRUG THERAPY
     Dosage: UNK
  7. PERINDOPRIL [Concomitant]
     Active Substance: PERINDOPRIL
     Dosage: UNK
     Dates: end: 2015
  8. RANITIDINE. [Concomitant]
     Active Substance: RANITIDINE
     Dosage: UNK
     Dates: end: 2015
  9. TRIMETHOPRIM SULFAMETHOXAZOLE [Concomitant]
     Active Substance: SULFAMETHOXAZOLE\TRIMETHOPRIM
     Dosage: UNK
     Dates: end: 2015
  10. AMOXICILLIN CLAVULANIC ACID [Concomitant]
     Active Substance: AMOXICILLIN\CLAVULANIC ACID
     Dosage: UNK
     Dates: end: 2015
  11. PREDNISONE. [Concomitant]
     Active Substance: PREDNISONE
     Indication: ALLERGY PROPHYLAXIS
     Dosage: 40MG/WEEK PREDNISONE ALONG WITH EACH INJECTIONS OF RITUXIMAB FOR 4 WEEKS
     Route: 065
  12. TACROLIMUS. [Suspect]
     Active Substance: TACROLIMUS
     Indication: IMMUNOSUPPRESSANT DRUG THERAPY
     Dosage: UNK
  13. RITUXIMAB. [Suspect]
     Active Substance: RITUXIMAB
     Dosage: 375 MG/M2, SINGLE; IN TOTAL
     Route: 042
     Dates: start: 201202
  14. OFLOXACIN. [Concomitant]
     Active Substance: OFLOXACIN
     Dosage: UNK
     Dates: end: 2015
  15. LORATADINE. [Concomitant]
     Active Substance: LORATADINE
     Indication: ALLERGY PROPHYLAXIS
     Dosage: LORATADINE WEEKLY ALONG WITH EACH INJECTIONS OF RITUXIMAB FOR 4 WEEKS
  16. PREDNISOLONE. [Suspect]
     Active Substance: PREDNISOLONE
     Indication: IMMUNOSUPPRESSANT DRUG THERAPY
     Dosage: UNK
     Route: 065
  17. METHYLPREDNISOLONE. [Suspect]
     Active Substance: METHYLPREDNISOLONE
     Indication: IMMUNOSUPPRESSANT DRUG THERAPY
     Dosage: UNK
  18. ANTITHYMOCYTE IMMUNOGLOBULIN [Suspect]
     Active Substance: THYMOCYTE IMMUNE GLOBULIN NOS
     Indication: IMMUNOSUPPRESSANT DRUG THERAPY
     Dosage: UNK
  19. MANIDIPINE [Concomitant]
     Active Substance: MANIDIPINE
     Dosage: UNK
     Dates: end: 2015
  20. NEBIVOLOL. [Concomitant]
     Active Substance: NEBIVOLOL
     Dosage: UNK
     Dates: end: 2015

REACTIONS (4)
  - Epstein Barr virus positive mucocutaneous ulcer [Unknown]
  - Post transplant lymphoproliferative disorder [Recovering/Resolving]
  - Post transplant lymphoproliferative disorder [Recovered/Resolved]
  - Osteonecrosis of jaw [Recovered/Resolved]

NARRATIVE: CASE EVENT DATE: 20150901
